FAERS Safety Report 21925851 (Version 2)
Quarter: 2023Q1

REPORT INFORMATION
  Report Type: Spontaneous
  Country: US (occurrence: US)
  Receive Date: 20230130
  Receipt Date: 20230310
  Transmission Date: 20230418
  Serious: No
  Sender: FDA-Public Use
  Company Number: US-FDC-2023USSPO00017

PATIENT
  Sex: Female

DRUGS (1)
  1. LATANOPROST [Suspect]
     Active Substance: LATANOPROST
     Indication: Eye disorder
     Route: 047

REACTIONS (3)
  - Product use complaint [Unknown]
  - Product substitution issue [Unknown]
  - Product container issue [Unknown]
